FAERS Safety Report 11811033 (Version 1)
Quarter: 2015Q4

REPORT INFORMATION
  Report Type: Spontaneous
  Country: GB (occurrence: GB)
  Receive Date: 20151208
  Receipt Date: 20151208
  Transmission Date: 20160305
  Serious: Yes (Other)
  Sender: FDA-Public Use
  Company Number: GB-VIIV HEALTHCARE LIMITED-GB2015GSK173540

PATIENT
  Age: 32 Year
  Sex: Female

DRUGS (6)
  1. ATAZANAVIR [Suspect]
     Active Substance: ATAZANAVIR
     Indication: CRYPTOCOCCOSIS
  2. ABACAVIR. [Suspect]
     Active Substance: ABACAVIR
     Indication: CRYPTOCOCCOSIS
  3. ABACAVIR. [Suspect]
     Active Substance: ABACAVIR
     Indication: HIV INFECTION
     Dosage: UNK
     Route: 065
  4. LAMIVUDINE. [Suspect]
     Active Substance: LAMIVUDINE
     Indication: HIV INFECTION
     Dosage: UNK
     Route: 065
  5. LAMIVUDINE. [Suspect]
     Active Substance: LAMIVUDINE
     Indication: CRYPTOCOCCOSIS
  6. ATAZANAVIR [Suspect]
     Active Substance: ATAZANAVIR
     Indication: HIV INFECTION
     Dosage: UNK
     Route: 065

REACTIONS (4)
  - Immune reconstitution inflammatory syndrome [Recovered/Resolved]
  - Muscle oedema [Recovered/Resolved]
  - Lymphadenitis [Recovered/Resolved]
  - Lymphadenopathy [Recovered/Resolved]
